FAERS Safety Report 13869225 (Version 2)
Quarter: 2018Q1

REPORT INFORMATION
  Report Type: Report from Study
  Country: US (occurrence: US)
  Receive Date: 20170815
  Receipt Date: 20180119
  Transmission Date: 20180508
  Serious: Yes (Other)
  Sender: FDA-Public Use
  Company Number: US-JNJFOC-20161001799

PATIENT
  Age: 60 Year
  Sex: Female

DRUGS (6)
  1. IMBRUVICA [Suspect]
     Active Substance: IBRUTINIB
     Indication: CHRONIC LYMPHOCYTIC LEUKAEMIA
     Route: 048
     Dates: start: 20160518
  2. FISH OIL [Concomitant]
     Active Substance: FISH OIL
  3. LISINOPRIL. [Concomitant]
     Active Substance: LISINOPRIL
  4. IMBRUVICA [Suspect]
     Active Substance: IBRUTINIB
     Indication: CHRONIC LYMPHOCYTIC LEUKAEMIA
     Route: 048
     Dates: start: 20160517
  5. COENZYME Q10 [Concomitant]
     Active Substance: UBIDECARENONE
  6. MONASCUS PURPUREUS [Concomitant]
     Active Substance: RED YEAST

REACTIONS (16)
  - Dry skin [Not Recovered/Not Resolved]
  - Blood pressure increased [Not Recovered/Not Resolved]
  - White blood cell count abnormal [Unknown]
  - Fatigue [Not Recovered/Not Resolved]
  - Dry eye [Not Recovered/Not Resolved]
  - Eyelid operation [Unknown]
  - Breast pain [Not Recovered/Not Resolved]
  - Visual impairment [Recovering/Resolving]
  - Contusion [Not Recovered/Not Resolved]
  - Skin mass [Not Recovered/Not Resolved]
  - Dry mouth [Not Recovered/Not Resolved]
  - Neutrophil count increased [Not Recovered/Not Resolved]
  - Corneal oedema [Not Recovered/Not Resolved]
  - Implant site extravasation [Unknown]
  - Granuloma skin [Not Recovered/Not Resolved]
  - Colonoscopy [Unknown]

NARRATIVE: CASE EVENT DATE: 20160926
